FAERS Safety Report 5486122-5 (Version None)
Quarter: 2007Q4

REPORT INFORMATION
  Report Type: 
  Country: None (occurrence: None)
  Receive Date: 20071015
  Receipt Date: 20071003
  Transmission Date: 20080405
  Serious: Yes (Hospitalization)
  Sender: FDA-Public Use
  Company Number: IT-PFIZER INC-2007073243

PATIENT
  Sex: Female
  Weight: 77 kg

DRUGS (7)
  1. SU-011,248 [Suspect]
     Indication: BREAST CANCER
     Route: 048
     Dates: start: 20070720, end: 20070823
  2. NORVASC [Concomitant]
     Dosage: DAILY DOSE:5MG
     Route: 048
     Dates: start: 20070810, end: 20070830
  3. RABEPRAZOLE SODIUM [Concomitant]
     Dosage: DAILY DOSE:20MG
     Route: 048
     Dates: start: 20070719, end: 20070830
  4. CITALOPRAM HYDROBROMIDE [Concomitant]
     Dosage: DAILY DOSE:20MG
     Route: 048
     Dates: start: 20070101, end: 20070830
  5. TRITTICO [Concomitant]
     Route: 048
  6. ALLOPURINOL [Concomitant]
     Route: 048
     Dates: start: 20070625
  7. CATAPRESAN [Concomitant]
     Route: 042
     Dates: start: 20070809, end: 20070809

REACTIONS (1)
  - CARDIAC FAILURE [None]
